FAERS Safety Report 6598807-8 (Version None)
Quarter: 2010Q1

REPORT INFORMATION
  Report Type: 
  Country: None (occurrence: None)
  Receive Date: 20100224
  Receipt Date: 20100212
  Transmission Date: 20100710
  Serious: Yes (Other)
  Sender: FDA-Public Use
  Company Number: US-PFIZER INC-2010020398

PATIENT
  Sex: Female
  Weight: 68 kg

DRUGS (3)
  1. CLINDAMYCIN HCL [Suspect]
     Indication: INFECTION
     Dosage: 150 MG, 4X/DAY
     Dates: start: 20100205, end: 20100210
  2. LIPITOR [Suspect]
     Indication: BLOOD CHOLESTEROL
     Dosage: 10 MG, 1X/DAY
     Dates: start: 20100205, end: 20100210
  3. NEXIUM [Suspect]
     Dates: start: 20090101, end: 20100210

REACTIONS (1)
  - PALPITATIONS [None]
